FAERS Safety Report 7851695-1 (Version None)
Quarter: 2011Q4

REPORT INFORMATION
  Report Type: 
  Country: None (occurrence: None)
  Receive Date: 20111026
  Receipt Date: 20111018
  Transmission Date: 20120403
  Serious: Yes (Hospitalization)
  Sender: FDA-Public Use
  Company Number: PHHY2011FI74736

PATIENT
  Sex: Male

DRUGS (2)
  1. EXFORGE [Suspect]
     Dosage: 160MG OF VALS AND 10 MG OF AMLO
     Route: 048
  2. LAMISIL [Concomitant]
     Indication: TINEA PEDIS
     Dosage: UNK UKN, UNK
     Route: 003
     Dates: start: 20110524

REACTIONS (3)
  - SKIN EXFOLIATION [None]
  - PRURITUS [None]
  - PAPULE [None]
